FAERS Safety Report 4700470-5 (Version None)
Quarter: 2005Q2

REPORT INFORMATION
  Report Type: 
  Country: None (occurrence: None)
  Receive Date: 20050624
  Receipt Date: 20050609
  Transmission Date: 20051028
  Serious: Yes (Hospitalization)
  Sender: FDA-Public Use
  Company Number: 11615

PATIENT
  Age: 70 Year
  Sex: Male

DRUGS (5)
  1. LEUCOVORIN [Suspect]
     Indication: COLON CANCER
     Dosage: 75 MG, PO
     Route: 048
     Dates: start: 20050125, end: 20050215
  2. CABERGOLINE [Suspect]
     Indication: PARKINSON'S DISEASE
     Dosage: 2 MG, PO
     Route: 048
     Dates: start: 20041224
  3. CARBIDOPA AND LEVODOPA [Suspect]
     Indication: PARKINSON'S DISEASE
     Dosage: 200 MG, PO
     Route: 048
     Dates: start: 20041228
  4. AMLODIPINE BESYLATE [Suspect]
     Indication: HYPERTENSION
     Dosage: 5 MG, PO
     Route: 048
  5. TEGAGUR URACIL [Suspect]
     Indication: COLON CANCER
     Dosage: 500 MG, PO
     Route: 048
     Dates: start: 20050125, end: 20050215

REACTIONS (1)
  - OESOPHAGITIS [None]
